FAERS Safety Report 5228856-3 (Version None)
Quarter: 2007Q1

REPORT INFORMATION
  Report Type: 
  Country: None (occurrence: None)
  Receive Date: 20070205
  Receipt Date: 20070201
  Transmission Date: 20070707
  Serious: Yes (Other)
  Sender: FDA-Public Use
  Company Number: US-JNJFOC-20061204742

PATIENT
  Sex: Male

DRUGS (1)
  1. ARESTIN [Suspect]
     Indication: PERIODONTITIS

REACTIONS (5)
  - BLOOD GLUCOSE INCREASED [None]
  - DISORIENTATION [None]
  - DIZZINESS [None]
  - LOSS OF CONSCIOUSNESS [None]
  - VERTIGO [None]
